FAERS Safety Report 20221942 (Version 1)
Quarter: 2021Q4

REPORT INFORMATION
  Report Type: Spontaneous
  Country: US (occurrence: US)
  Receive Date: 20211223
  Receipt Date: 20211223
  Transmission Date: 20220303
  Serious: Yes (Other)
  Sender: FDA-Public Use
  Company Number: US-GLAXOSMITHKLINE-US2021GSK258965

PATIENT

DRUGS (4)
  1. ZANTAC [Suspect]
     Active Substance: RANITIDINE HYDROCHLORIDE
     Indication: Product used for unknown indication
     Dosage: UNKNOWN AT THIS TIME OVER THE COUNTER
     Route: 065
     Dates: start: 198501, end: 201807
  2. ZANTAC [Suspect]
     Active Substance: RANITIDINE HYDROCHLORIDE
     Indication: Product used for unknown indication
     Dosage: UNKNOWN AT THIS TIME OVER THE COUNTER
     Route: 065
     Dates: start: 198501, end: 201807
  3. RANITIDINE [Suspect]
     Active Substance: RANITIDINE
     Indication: Product used for unknown indication
     Dosage: UNKNOWN AT THIS TIME PRESCRIPTION
     Route: 065
  4. RANITIDINE [Suspect]
     Active Substance: RANITIDINE
     Indication: Product used for unknown indication
     Dosage: UNKNOWN AT THIS TIME PRESCRIPTION
     Route: 065

REACTIONS (1)
  - Colorectal cancer [Unknown]
